FAERS Safety Report 11524407 (Version 1)
Quarter: 2015Q3

REPORT INFORMATION
  Report Type: Spontaneous
  Country: US (occurrence: US)
  Receive Date: 20150903
  Receipt Date: 20150903
  Transmission Date: 20151125
  Serious: No
  Sender: FDA-Public Use
  Company Number: US-ELI_LILLY_AND_COMPANY-US201209007765

PATIENT
  Age: 57 Year
  Sex: Female

DRUGS (6)
  1. CLONAZEPAM. [Concomitant]
     Active Substance: CLONAZEPAM
     Dosage: UNK, PRN
  2. CYMBALTA [Suspect]
     Active Substance: DULOXETINE HYDROCHLORIDE
     Indication: DEPRESSION
     Dosage: 80 MG, QD
     Dates: start: 201012
  3. VITAMIN D [Concomitant]
     Active Substance: CHOLECALCIFEROL
  4. CYMBALTA [Suspect]
     Active Substance: DULOXETINE HYDROCHLORIDE
     Dosage: 60 MG, QD
  5. LAMOTRIGINE. [Concomitant]
     Active Substance: LAMOTRIGINE
  6. VITAMIN B [Concomitant]
     Active Substance: VITAMIN B

REACTIONS (5)
  - Tremor [Unknown]
  - Dysuria [Unknown]
  - Asthenia [Unknown]
  - Hyperreflexia [Unknown]
  - Balance disorder [Unknown]
